FAERS Safety Report 11848517 (Version 2)
Quarter: 2016Q1

REPORT INFORMATION
  Report Type: Spontaneous
  Country: JP (occurrence: JP)
  Receive Date: 20151218
  Receipt Date: 20160209
  Transmission Date: 20160526
  Serious: Yes (Hospitalization, Other)
  Sender: FDA-Public Use
  Company Number: JP-ORION CORPORATION ORION PHARMA-ENT 2015-1054

PATIENT
  Age: 66 Year
  Sex: Male

DRUGS (8)
  1. COMTAN [Suspect]
     Active Substance: ENTACAPONE
     Indication: PARKINSON^S DISEASE
     Route: 048
  2. ARTANE [Concomitant]
     Active Substance: TRIHEXYPHENIDYL HYDROCHLORIDE
     Route: 065
  3. MUCOSAL [Concomitant]
     Route: 065
  4. GOODMIN [Concomitant]
     Active Substance: BROTIZOLAM
     Route: 065
  5. SENNOSIDE [Concomitant]
     Active Substance: SENNOSIDES
     Route: 065
  6. SYMMETRAL [Concomitant]
     Route: 065
  7. MENESIT [Concomitant]
     Active Substance: CARBIDOPA\LEVODOPA
     Route: 065
  8. PREDONINE [Concomitant]
     Active Substance: PREDNISOLONE\PREDNISOLONE ACETATE\PREDNISOLONE SODIUM SUCCINATE
     Route: 065

REACTIONS (4)
  - Asthenia [Unknown]
  - Delirium [Unknown]
  - Insomnia [Not Recovered/Not Resolved]
  - Restlessness [Unknown]

NARRATIVE: CASE EVENT DATE: 20151210
